FAERS Safety Report 6769728-2 (Version None)
Quarter: 2010Q2

REPORT INFORMATION
  Report Type: 
  Country: None (occurrence: None)
  Receive Date: 20100615
  Receipt Date: 20100604
  Transmission Date: 20101027
  Serious: Yes (Other)
  Sender: FDA-Public Use
  Company Number: PHHY2010DE09430

PATIENT
  Age: 57 Year
  Sex: Male

DRUGS (1)
  1. SANDIMMUNE [Suspect]
     Indication: ONCOLOGIC COMPLICATION
     Dosage: 4X 5ML (1000 MG)
     Route: 042

REACTIONS (3)
  - ACCIDENTAL OVERDOSE [None]
  - IMMUNOSUPPRESSANT DRUG LEVEL INCREASED [None]
  - MEDICATION ERROR [None]
